FAERS Safety Report 6429200-6 (Version None)
Quarter: 2009Q4

REPORT INFORMATION
  Report Type: 
  Country: None (occurrence: None)
  Receive Date: 20091105
  Receipt Date: 20091103
  Transmission Date: 20100525
  Serious: Yes (Hospitalization)
  Sender: FDA-Public Use
  Company Number: FR-WYE-G04782009

PATIENT
  Age: 55 Year
  Sex: Male

DRUGS (4)
  1. RHINADVIL [Suspect]
     Indication: NASOPHARYNGITIS
     Dosage: UNKNOWN
     Route: 048
     Dates: start: 20081001, end: 20081001
  2. DERINOX [Suspect]
     Indication: NASOPHARYNGITIS
     Dosage: UNKNOWN
     Route: 045
     Dates: start: 20081001, end: 20081001
  3. ACTIFED JOUR ET NUIT [Suspect]
     Indication: NASOPHARYNGITIS
     Dosage: UNKNOWN
     Route: 048
     Dates: start: 20081001, end: 20081001
  4. RHINUREFLEX [Suspect]
     Indication: NASOPHARYNGITIS
     Dosage: UNKNOWN
     Route: 048
     Dates: start: 20081001, end: 20081001

REACTIONS (5)
  - CEREBROVASCULAR ACCIDENT [None]
  - CEREBROVASCULAR SPASM [None]
  - INFLAMMATION [None]
  - LACUNAR INFARCTION [None]
  - MEDICATION ERROR [None]
